FAERS Safety Report 7310301-5 (Version None)
Quarter: 2011Q1

REPORT INFORMATION
  Report Type: 
  Country: None (occurrence: None)
  Receive Date: 20110224
  Receipt Date: 20110128
  Transmission Date: 20110831
  Serious: No
  Sender: FDA-Public Use
  Company Number: US-B.I. PHARMACEUTICALS,INC./RIDGEFIELD-2010-BP-15128BP

PATIENT
  Age: 68 Year
  Sex: Male

DRUGS (10)
  1. ZETIA [Concomitant]
     Dosage: 10 MG
  2. PRADAXA [Suspect]
     Indication: ANTICOAGULANT THERAPY
     Dosage: 300 MG
     Route: 048
     Dates: start: 20101210
  3. LASIX [Concomitant]
     Dosage: 80 MG
  4. NIACIN [Concomitant]
     Dosage: 1500 MG
  5. ASPIRIN [Concomitant]
     Dosage: 81 MG
  6. PRADAXA [Suspect]
     Indication: IMPLANTABLE DEFIBRILLATOR INSERTION
  7. CARVEDILOL [Concomitant]
     Dosage: 50 MG
  8. MULTAQ [Concomitant]
     Dosage: 800 MG
  9. LISINO/HCTZ [Concomitant]
  10. SIMVASTATIN [Concomitant]
     Dosage: 80 MG

REACTIONS (1)
  - FAECES DISCOLOURED [None]
